FAERS Safety Report 4895555-7 (Version None)
Quarter: 2006Q1

REPORT INFORMATION
  Report Type: 
  Country: None (occurrence: None)
  Receive Date: 20060130
  Receipt Date: 19990225
  Transmission Date: 20060701
  Serious: Yes (Death)
  Sender: FDA-Public Use
  Company Number: JP-ROCHE-201522

PATIENT
  Age: 43 Year
  Sex: Male
  Weight: 82 kg

DRUGS (6)
  1. VESANOID [Suspect]
     Route: 048
     Dates: start: 19951006, end: 19951130
  2. VESANOID [Suspect]
     Route: 048
     Dates: start: 19960606, end: 19960701
  3. VESANOID [Suspect]
     Route: 048
     Dates: start: 19961215, end: 19970114
  4. BH-AC [Concomitant]
     Route: 065
     Dates: start: 19951006, end: 19960115
  5. DNR [Concomitant]
     Route: 065
     Dates: start: 19951006, end: 19960615
  6. CHEMOTHERAPY [Concomitant]
     Dates: start: 19951130, end: 19960330

REACTIONS (6)
  - BALANITIS [None]
  - BONE MARROW FAILURE [None]
  - CEREBRAL HAEMORRHAGE [None]
  - LEUKAEMIA [None]
  - NECROTISING FASCIITIS [None]
  - SEPSIS [None]
